FAERS Safety Report 10477714 (Version 5)
Quarter: 2015Q1

REPORT INFORMATION
  Report Type: Spontaneous
  Country: JP (occurrence: JP)
  Receive Date: 20140926
  Receipt Date: 20150206
  Transmission Date: 20150720
  Serious: Yes (Death, Other)
  Sender: FDA-Public Use
  Company Number: JP-ASTRAZENECA-2014SE70538

PATIENT
  Age: 30138 Day
  Sex: Male
  Weight: 43 kg

DRUGS (5)
  1. FENTANYL. [Concomitant]
     Active Substance: FENTANYL
     Indication: GENERAL ANAESTHESIA
     Dosage: 50 - 25 MCG AT EACH TIME, TOTAL 130 MCG
     Route: 042
     Dates: start: 20130227, end: 20130227
  2. ANAPEINE [Suspect]
     Active Substance: ROPIVACAINE HYDROCHLORIDE
     Indication: NERVE BLOCK
     Route: 053
     Dates: start: 20130227, end: 20130227
  3. SEVOFLURANE. [Concomitant]
     Active Substance: SEVOFLURANE
     Indication: GENERAL ANAESTHESIA
     Dosage: 5% FOLLOWED BY 2%, TOTAL 20 ML
     Route: 055
     Dates: start: 20130227, end: 20130227
  4. ANAPEINE [Suspect]
     Active Substance: ROPIVACAINE HYDROCHLORIDE
     Indication: NERVE BLOCK
     Route: 053
     Dates: start: 20130227, end: 20130227
  5. ANHIBA [Concomitant]
     Active Substance: ACETAMINOPHEN
     Indication: POSTOPERATIVE ANALGESIA
     Route: 054
     Dates: start: 20130227, end: 20130227

REACTIONS (3)
  - Toxicity to various agents [Fatal]
  - Cardio-respiratory arrest [Fatal]
  - Glossoptosis [Unknown]

NARRATIVE: CASE EVENT DATE: 20130227
